FAERS Safety Report 20493964 (Version 1)
Quarter: 2022Q1

REPORT INFORMATION
  Report Type: Report from Study
  Country: US (occurrence: US)
  Receive Date: 20220221
  Receipt Date: 20220221
  Transmission Date: 20220423
  Serious: Yes (Other)
  Sender: FDA-Public Use
  Company Number: US-NOVARTISPH-NVSC2022US038121

PATIENT
  Weight: 86.18 kg

DRUGS (1)
  1. ENTRESTO [Suspect]
     Active Substance: SACUBITRIL\VALSARTAN
     Indication: Product used for unknown indication
     Dosage: (97/103 MG), BID
     Route: 048
     Dates: start: 202112

REACTIONS (2)
  - Keratoconus [Unknown]
  - Blindness [Unknown]
